FAERS Safety Report 9725523 (Version 1)
Quarter: 2013Q4

REPORT INFORMATION
  Report Type: Not Available
  Country: US (occurrence: US)
  Receive Date: 20131203
  Receipt Date: 20131203
  Transmission Date: 20140711
  Serious: Yes (Hospitalization)
  Sender: FDA-Public Use
  Company Number: US-VIROPHARMA INCORPORATED-20131118CINRY5391

PATIENT
  Age: 36 Year
  Sex: Female

DRUGS (7)
  1. CINRYZE (C1 ESTERASE INHIBITOR (HUMAN)) [Suspect]
     Indication: HEREDITARY ANGIOEDEMA
     Route: 042
     Dates: start: 20101108
  2. CINRYZE (C1 ESTERASE INHIBITOR (HUMAN)) [Suspect]
     Indication: PROPHYLAXIS
     Route: 042
  3. CYMBALTA [Suspect]
     Indication: DEPRESSION
     Route: 065
  4. ZOLOFT [Suspect]
     Indication: DEPRESSION
     Route: 065
     Dates: end: 201311
  5. KLONOPIN [Concomitant]
     Indication: ANXIETY
     Route: 065
  6. SEROQUEL [Concomitant]
     Indication: DEPRESSION
     Dosage: 300 MH
     Route: 065
  7. AMBIEN [Concomitant]
     Indication: PRODUCT USED FOR UNKNOWN INDICATION
     Route: 065

REACTIONS (8)
  - Cholecystectomy [Recovered/Resolved]
  - Device related infection [Recovering/Resolving]
  - Hereditary angioedema [Recovering/Resolving]
  - Bone pain [Unknown]
  - Stress [Unknown]
  - Off label use [Recovered/Resolved]
  - Therapy change [Not Recovered/Not Resolved]
  - Inappropriate schedule of drug administration [Not Recovered/Not Resolved]
